FAERS Safety Report 20892502 (Version 1)
Quarter: 2022Q2

REPORT INFORMATION
  Report Type: Spontaneous
  Country: IL (occurrence: IL)
  Receive Date: 20220531
  Receipt Date: 20220531
  Transmission Date: 20220720
  Serious: Yes (Other)
  Sender: FDA-Public Use
  Company Number: IL-SUN PHARMACEUTICAL INDUSTRIES LTD-2022R1-338177

PATIENT
  Sex: Male
  Weight: 1.7 kg

DRUGS (3)
  1. CAPTOPRIL [Suspect]
     Active Substance: CAPTOPRIL
     Indication: Congestive cardiomyopathy
     Dosage: 25 MILLIGRAM, TID
     Route: 064
  2. CARVEDILOL [Suspect]
     Active Substance: CARVEDILOL
     Indication: Congestive cardiomyopathy
     Dosage: 12.5 MILLIGRAM, BID
     Route: 064
  3. DIGOXIN [Suspect]
     Active Substance: DIGOXIN
     Indication: Congestive cardiomyopathy
     Dosage: 0.25 MILLIGRAM, DAILY
     Route: 064

REACTIONS (3)
  - Premature baby [Unknown]
  - Low birth weight baby [Unknown]
  - Foetal exposure during pregnancy [Unknown]
